FAERS Safety Report 7968667-9 (Version None)
Quarter: 2011Q4

REPORT INFORMATION
  Report Type: 
  Country: None (occurrence: None)
  Receive Date: 20111207
  Receipt Date: 20111122
  Transmission Date: 20120403
  Serious: Yes (Life-Threatening)
  Sender: FDA-Public Use
  Company Number: 2011SGN00287

PATIENT
  Age: 69 Year
  Sex: Male

DRUGS (11)
  1. VINCRISTINE [Suspect]
     Indication: ANAPLASTIC LARGE CELL LYMPHOMA T- AND NULL-CELL TYPES
     Dosage: 1.4 MG/M2, Q21D, INTRAVENOUS
     Route: 042
     Dates: start: 20110810, end: 20111019
  2. ALENDRONATE SODIUM [Concomitant]
  3. BRENTUXIMAB VEDOTIN (BRENTUXIMAB VEDOTIN) INJECTION [Suspect]
     Indication: ANAPLASTIC LARGE CELL LYMPHOMA T- AND NULL-CELL TYPES
     Dosage: 1.8 MG/KG, Q21D, INTRAVENOUS
     Route: 042
     Dates: start: 20110629, end: 20110720
  4. SIMVASTATIN [Concomitant]
  5. METOCLOPRAMIDE [Concomitant]
  6. CYCLOPHOSPHAMIDE [Suspect]
     Indication: ANAPLASTIC LARGE CELL LYMPHOMA T- AND NULL-CELL TYPES
     Dosage: 750 MG/M2, Q21D, INTRAVENOUS
     Route: 042
     Dates: start: 20110810, end: 20111019
  7. DOXORUBICIN HCL [Suspect]
     Indication: ANAPLASTIC LARGE CELL LYMPHOMA T- AND NULL-CELL TYPES
     Dosage: 50 MG/M2, Q21D, INTRAVENOUS
     Route: 042
     Dates: start: 20110810, end: 20111019
  8. SENNA (SENNA) [Concomitant]
  9. CLOPIDOGREL [Concomitant]
  10. ALLOPURINOL [Concomitant]
  11. ACETAMINOPHEN [Concomitant]

REACTIONS (2)
  - NEUTROPENIC INFECTION [None]
  - PNEUMOCYSTIS JIROVECI PNEUMONIA [None]
